FAERS Safety Report 16595563 (Version 1)
Quarter: 2019Q3

REPORT INFORMATION
  Report Type: Spontaneous
  Country: DE (occurrence: DE)
  Receive Date: 20190719
  Receipt Date: 20190719
  Transmission Date: 20191004
  Serious: Yes (Death, Hospitalization)
  Sender: FDA-Public Use
  Company Number: DE-ACCORD-138643

PATIENT
  Age: 76 Year
  Sex: Male
  Weight: 70 kg

DRUGS (16)
  1. FUROSEMIDE. [Suspect]
     Active Substance: FUROSEMIDE
     Indication: PRODUCT USED FOR UNKNOWN INDICATION
     Dosage: 40 MG, 1-1-0, TABLET
     Route: 048
  2. COLECALCIFEROL [Concomitant]
     Active Substance: CHOLECALCIFEROL
     Dosage: 1-0-0, TABLET
     Route: 048
  3. IRINOTECAN [Suspect]
     Active Substance: IRINOTECAN
     Indication: PRODUCT USED FOR UNKNOWN INDICATION
     Dosage: LAST ON 19.06.2017, INJECTION / INFUSION SOLUTION
     Route: 042
     Dates: end: 20170619
  4. METFORMIN [Concomitant]
     Active Substance: METFORMIN HYDROCHLORIDE
     Dosage: 500 MG, 1-0-1, TABLET
     Route: 048
  5. ATORVASTATIN/ATORVASTATIN CALCIUM [Concomitant]
     Dosage: 40 MG, 0-0-1, TABLET
     Route: 048
  6. AVASTIN [Suspect]
     Active Substance: BEVACIZUMAB
     Indication: PRODUCT USED FOR UNKNOWN INDICATION
     Dosage: LAST ON 19.06.2017, INJECTION / INFUSION SOLUTION
     Route: 042
     Dates: end: 20170619
  7. LANTUS [Concomitant]
     Active Substance: INSULIN GLARGINE
     Dosage: 14 IU, 0-0-1, SOLUTION FOR INJECTION / INFUSION
     Route: 058
  8. BELOC-ZOK [Concomitant]
     Active Substance: METOPROLOL SUCCINATE
     Dosage: 1/2-0-1, TABLET
     Route: 048
  9. MAGNESIUM HYDROXIDE. [Concomitant]
     Active Substance: MAGNESIUM HYDROXIDE
     Dosage: 1-0-1
     Route: 048
  10. XARELTO [Concomitant]
     Active Substance: RIVAROXABAN
     Dosage: 20 MG, 1-0-0, TABLET
     Route: 048
  11. IBUPROFEN. [Concomitant]
     Active Substance: IBUPROFEN
     Dosage: TABLET
     Route: 048
  12. MOXONIDINE [Concomitant]
     Active Substance: MOXONIDINE
     Dosage: 0.2 MG, 1-0-1, TABLET
     Route: 048
  13. AMLODIPINE [Concomitant]
     Active Substance: AMLODIPINE BESYLATE
     Dosage: 5 MG, 1-0-1, TABLET
     Route: 048
  14. VALSARTAN. [Concomitant]
     Active Substance: VALSARTAN
     Dosage: 160 MG, 1-0-1, TABLET
     Route: 048
  15. HUMALOG [Concomitant]
     Active Substance: INSULIN LISPRO
     Dosage: 6 IU, 1-1-1, INJECTION / INFUSION
     Route: 058
  16. DOBENDAN [Concomitant]
     Route: 048

REACTIONS (2)
  - Dehydration [Unknown]
  - Mucosal inflammation [Unknown]
